FAERS Safety Report 25532240 (Version 2)
Quarter: 2025Q4

REPORT INFORMATION
  Report Type: Spontaneous
  Country: US (occurrence: US)
  Receive Date: 20250709
  Receipt Date: 20251203
  Transmission Date: 20260117
  Serious: Yes (Other)
  Sender: COOPERSURGICAL
  Company Number: US-COOPERSURGICAL, INC.-2025CPS005261

PATIENT
  Age: 37 Year
  Sex: Female
  Weight: 98.866 kg

DRUGS (1)
  1. PARAGARD T 380A [Suspect]
     Active Substance: COPPER
     Indication: Contraception
     Dosage: UNK
     Route: 015
     Dates: start: 20141107, end: 20240807

REACTIONS (19)
  - Hysterectomy [Recovered/Resolved]
  - Oophorectomy bilateral [Recovered/Resolved]
  - Device breakage [Recovered/Resolved]
  - Foreign body in reproductive tract [Recovered/Resolved]
  - Complication of device removal [Recovered/Resolved]
  - Embedded device [Recovered/Resolved]
  - Procedural pain [Recovered/Resolved]
  - Micturition urgency [Unknown]
  - Emotional distress [Unknown]
  - Heavy menstrual bleeding [Recovered/Resolved]
  - Muscle spasms [Unknown]
  - Dyspareunia [Not Recovered/Not Resolved]
  - Pain [Not Recovered/Not Resolved]
  - Anaemia [Not Recovered/Not Resolved]
  - Lichen sclerosus [Unknown]
  - Vulvovaginal dryness [Unknown]
  - Pelvic pain [Unknown]
  - Bacterial vulvovaginitis [Unknown]
  - Vulvovaginitis [Unknown]

NARRATIVE: CASE EVENT DATE: 20150312
